FAERS Safety Report 10364865 (Version 3)
Quarter: 2017Q2

REPORT INFORMATION
  Report Type: Report from Study
  Country: KR (occurrence: KR)
  Receive Date: 20140806
  Receipt Date: 20170630
  Transmission Date: 20170829
  Serious: Yes (Hospitalization)
  Sender: FDA-Public Use
  Company Number: KR-OTSUKA-JP-2014-15839

PATIENT
  Age: 78 Year
  Sex: Female

DRUGS (15)
  1. DIABEX [Concomitant]
     Active Substance: METFORMIN HYDROCHLORIDE
     Indication: HYPONATRAEMIA
     Dosage: 2 DF, QD
     Route: 048
     Dates: start: 20140704
  2. GRANDPAZE S [Concomitant]
     Indication: PROPHYLAXIS
     Dosage: 2 DF, QD
     Route: 048
     Dates: start: 20140703
  3. GANATON [Concomitant]
     Active Substance: ITOPRIDE
     Indication: PROPHYLAXIS
     Dosage: 2 DF, QD
     Route: 048
     Dates: start: 20140705
  4. YUHANZID [Concomitant]
     Active Substance: ISONIAZID
     Indication: HYPONATRAEMIA
     Dosage: 3 DF, QD
     Route: 048
     Dates: start: 20140708
  5. PYRAZINAMIDE. [Concomitant]
     Active Substance: PYRAZINAMIDE
     Indication: HYPONATRAEMIA
     Dosage: 2 DF, QD
     Route: 048
     Dates: start: 20140708
  6. PYRIDOXINE [Concomitant]
     Active Substance: PYRIDOXINE
     Indication: HYPONATRAEMIA
     Dosage: 1 DF, QD
     Route: 048
     Dates: start: 20140708
  7. LANSTON [Concomitant]
     Active Substance: LANSOPRAZOLE
     Indication: PROPHYLAXIS
     Dosage: 1 DF, QD
     Route: 048
     Dates: start: 20140709
  8. MYAMBUTOL [Concomitant]
     Active Substance: ETHAMBUTOL HYDROCHLORIDE
     Indication: HYPONATRAEMIA
     Dosage: 2 DF, QD
     Route: 048
     Dates: start: 20140708
  9. TOLVAPTAN [Suspect]
     Active Substance: TOLVAPTAN
     Indication: HYPONATRAEMIA
     Dosage: 15 MG, QD
     Route: 048
     Dates: start: 20140713, end: 20140718
  10. ASPIRIN. [Concomitant]
     Active Substance: ASPIRIN
     Indication: HYPONATRAEMIA
     Dosage: 1 DF, QD
     Route: 048
     Dates: start: 20140703
  11. RIFODEX [Concomitant]
     Indication: HYPONATRAEMIA
     Dosage: 3 DF, QD
     Route: 048
     Dates: start: 20140708
  12. CRESTOR [Concomitant]
     Active Substance: ROSUVASTATIN CALCIUM
     Indication: HYPONATRAEMIA
     Dosage: 1 DF, QD
     Route: 048
     Dates: start: 20140703
  13. TOLVAPTAN [Suspect]
     Active Substance: TOLVAPTAN
     Dosage: 15 MG, QD
     Route: 048
     Dates: start: 20140721, end: 20140804
  14. NORVASC [Concomitant]
     Active Substance: AMLODIPINE BESYLATE
     Indication: HYPONATRAEMIA
     Dosage: 1 DF, QD
     Route: 048
     Dates: start: 20140703
  15. PREDNISOLONE. [Concomitant]
     Active Substance: PREDNISOLONE
     Indication: HYPONATRAEMIA
     Dosage: 8 DF, QD
     Route: 048
     Dates: start: 20140708

REACTIONS (2)
  - Pneumonia [Recovered/Resolved]
  - Pyelonephritis [Recovered/Resolved]

NARRATIVE: CASE EVENT DATE: 20140719
